FAERS Safety Report 8831686 (Version 2)
Quarter: 2012Q4

REPORT INFORMATION
  Report Type: Report from Study
  Country: DE (occurrence: DE)
  Receive Date: 20121009
  Receipt Date: 20121023
  Transmission Date: 20130627
  Serious: Yes (Hospitalization)
  Sender: FDA-Public Use
  Company Number: DE-BRISTOL-MYERS SQUIBB COMPANY-16680530

PATIENT
  Age: 43 Year
  Sex: Male

DRUGS (5)
  1. IPILIMUMAB [Suspect]
     Indication: MALIGNANT MELANOMA
     Dosage: Dose:3 mg/kg Vs 10 mg.The next study drug was schedule on 21-Jun-2012.
     Route: 042
     Dates: start: 20120503
  2. RAMIPRIL [Concomitant]
     Dosage: Ramipril beta
     Dates: start: 2009
  3. DECORTIN [Concomitant]
     Dates: start: 20120612, end: 201206
  4. LOPEDIUM [Concomitant]
     Dates: start: 20120612, end: 20120613
  5. PANTOZOL [Concomitant]
     Dates: start: 20120612

REACTIONS (1)
  - Diarrhoea [Recovered/Resolved]
